FAERS Safety Report 24939794 (Version 4)
Quarter: 2025Q1

REPORT INFORMATION
  Report Type: Spontaneous
  Country: JP (occurrence: JP)
  Receive Date: 20250207
  Receipt Date: 20250312
  Transmission Date: 20250408
  Serious: Yes (Other)
  Sender: CSL BEHRING
  Company Number: JP-BEH-2025194081

PATIENT
  Age: 19 Year
  Sex: Female

DRUGS (7)
  1. HUMAN C1-ESTERASE INHIBITOR [Suspect]
     Active Substance: HUMAN C1-ESTERASE INHIBITOR
     Indication: Hereditary angioedema
     Route: 065
  2. HUMAN C1-ESTERASE INHIBITOR [Suspect]
     Active Substance: HUMAN C1-ESTERASE INHIBITOR
     Indication: Hereditary angioedema with normal C1 esterase inhibitor
     Route: 065
  3. HUMAN C1-ESTERASE INHIBITOR [Suspect]
     Active Substance: HUMAN C1-ESTERASE INHIBITOR
     Indication: Prophylaxis
  4. DANAZOL [Concomitant]
     Active Substance: DANAZOL
     Indication: Hereditary angioedema
  5. DANAZOL [Concomitant]
     Active Substance: DANAZOL
     Indication: Prophylaxis
  6. BEROTRALSTAT [Concomitant]
     Active Substance: BEROTRALSTAT
     Indication: Prophylaxis
     Dosage: UNK UNK, QOD
     Route: 048
  7. LANADELUMAB [Concomitant]
     Active Substance: LANADELUMAB

REACTIONS (9)
  - Hereditary angioedema [Unknown]
  - Dental caries [Unknown]
  - Toothache [Unknown]
  - Abdominal pain [Unknown]
  - Intervertebral disc protrusion [Unknown]
  - Pain [Unknown]
  - Infection [Unknown]
  - Nausea [Unknown]
  - Maternal exposure during pregnancy [Unknown]
